FAERS Safety Report 23243532 (Version 1)
Quarter: 2023Q4

REPORT INFORMATION
  Report Type: Other
  Country: CA (occurrence: CA)
  Receive Date: 20231130
  Receipt Date: 20231130
  Transmission Date: 20240109
  Serious: Yes (Death, Hospitalization, Other)
  Sender: FDA-Public Use
  Company Number: CA-APOTEX-2023AP017012

PATIENT
  Age: 73 Year
  Sex: Female

DRUGS (1)
  1. FULVESTRANT [Suspect]
     Active Substance: FULVESTRANT
     Indication: Oestrogen receptor assay positive
     Dosage: 250 MILLIGRAM
     Route: 065

REACTIONS (2)
  - Death [Fatal]
  - Hospitalisation [Unknown]
